FAERS Safety Report 10462674 (Version 1)
Quarter: 2014Q3

REPORT INFORMATION
  Report Type: Spontaneous
  Country: US (occurrence: US)
  Receive Date: 20140918
  Receipt Date: 20140918
  Transmission Date: 20150326
  Serious: Yes (Other)
  Sender: FDA-Public Use
  Company Number: US-RECKITT BENCKISER PHARMACEUTICAL, INC-RB-71518-2014

PATIENT
  Age: 44 Year
  Sex: Male

DRUGS (2)
  1. SUBOXONE [Suspect]
     Active Substance: BUPRENORPHINE HYDROCHLORIDE\NALOXONE HYDROCHLORIDE
     Indication: DRUG DEPENDENCE
     Dosage: 8 MG, BID
     Route: 060
     Dates: start: 20140909, end: 20140909
  2. FENTANYL. [Suspect]
     Active Substance: FENTANYL
     Route: 061

REACTIONS (8)
  - Agitation [Recovered/Resolved]
  - Feeling cold [Recovered/Resolved]
  - Blood pressure increased [Unknown]
  - Off label use [Recovered/Resolved]
  - Condition aggravated [Recovering/Resolving]
  - Drug withdrawal syndrome [Recovering/Resolving]
  - Psychomotor hyperactivity [Recovered/Resolved]
  - Restless legs syndrome [None]

NARRATIVE: CASE EVENT DATE: 20140909
